FAERS Safety Report 10795313 (Version 1)
Quarter: 2015Q1

REPORT INFORMATION
  Report Type: Spontaneous
  Country: US (occurrence: US)
  Receive Date: 20150214
  Receipt Date: 20150214
  Transmission Date: 20150721
  Serious: No
  Sender: FDA-Public Use
  Company Number: US-GLAXOSMITHKLINE-A1078608A

PATIENT

DRUGS (11)
  1. VENTOLIN [Suspect]
     Active Substance: ALBUTEROL SULFATE
     Indication: CHRONIC OBSTRUCTIVE PULMONARY DISEASE
     Route: 055
     Dates: start: 2007
  2. IMODIUM [Concomitant]
     Active Substance: LOPERAMIDE HYDROCHLORIDE
  3. RANITIDINE [Concomitant]
     Active Substance: RANITIDINE\RANITIDINE HYDROCHLORIDE
  4. BENADRYL [Concomitant]
     Active Substance: DIPHENHYDRAMINE HYDROCHLORIDE
  5. NITROSTAT [Concomitant]
     Active Substance: NITROGLYCERIN
  6. ATENOLOL. [Concomitant]
     Active Substance: ATENOLOL
  7. TRIAMTERENE. [Concomitant]
     Active Substance: TRIAMTERENE
  8. GABAPENTIN. [Concomitant]
     Active Substance: GABAPENTIN
  9. ALDOMET [Concomitant]
     Active Substance: METHYLDOPA
  10. FUROSEMIDE. [Concomitant]
     Active Substance: FUROSEMIDE
  11. MOTRIN [Concomitant]
     Active Substance: IBUPROFEN

REACTIONS (3)
  - Accident at work [Unknown]
  - Dyspnoea [Unknown]
  - Blood pressure increased [Recovered/Resolved]

NARRATIVE: CASE EVENT DATE: 2007
